FAERS Safety Report 10600064 (Version 1)
Quarter: 2014Q4

REPORT INFORMATION
  Report Type: Spontaneous
  Country: US (occurrence: US)
  Receive Date: 20141122
  Receipt Date: 20141122
  Transmission Date: 20150529
  Serious: No
  Sender: FDA-Public Use
  Company Number: US-SA-2014SA006737

PATIENT
  Age: 61 Year
  Sex: Female

DRUGS (1)
  1. RENVELA [Suspect]
     Active Substance: SEVELAMER CARBONATE
     Indication: HYPERPHOSPHATAEMIA
     Dosage: 2.4 GRAM WITH MEALS
     Route: 048
     Dates: start: 201308

REACTIONS (4)
  - Drug dose omission [Unknown]
  - Underdose [Unknown]
  - Product reconstitution issue [Unknown]
  - Dysgeusia [Not Recovered/Not Resolved]
